FAERS Safety Report 7918739-X (Version None)
Quarter: 2011Q4

REPORT INFORMATION
  Report Type: 
  Country: None (occurrence: None)
  Receive Date: 20111114
  Receipt Date: 20111108
  Transmission Date: 20120403
  Serious: No
  Sender: FDA-Public Use
  Company Number: 2011-01308

PATIENT
  Age: 48 Year
  Sex: Male
  Weight: 86.1834 kg

DRUGS (1)
  1. ZICAM COLD REMEDY PLUS ORAL MIST62750-032-10 [Suspect]
     Indication: NASOPHARYNGITIS
     Dosage: 4 SPRAYS ORALLY
     Route: 048
     Dates: start: 20111106, end: 20111108

REACTIONS (2)
  - AGEUSIA [None]
  - DYSGEUSIA [None]
